FAERS Safety Report 24407785 (Version 1)
Quarter: 2024Q4

REPORT INFORMATION
  Report Type: Spontaneous
  Country: US (occurrence: US)
  Receive Date: 20241007
  Receipt Date: 20241007
  Transmission Date: 20250115
  Serious: Yes (Hospitalization, Other)
  Sender: TEVA
  Company Number: US-TEVA-VS-3220768

PATIENT
  Age: 75 Year
  Sex: Female
  Weight: 49.82 kg

DRUGS (1)
  1. AUSTEDO [Suspect]
     Active Substance: DEUTETRABENAZINE
     Indication: Huntington^s disease
     Route: 048
     Dates: start: 20210224

REACTIONS (6)
  - Choking [Unknown]
  - Product prescribing issue [Unknown]
  - Vascular dementia [Unknown]
  - Mastication disorder [Unknown]
  - Vital capacity decreased [Recovered/Resolved]
  - Oxygen saturation abnormal [Recovered/Resolved]

NARRATIVE: CASE EVENT DATE: 20240701
